FAERS Safety Report 8926920 (Version 1)
Quarter: 2012Q4

REPORT INFORMATION
  Report Type: Report from Study
  Country: CA (occurrence: CA)
  Receive Date: 20121127
  Receipt Date: 20121127
  Transmission Date: 20130627
  Serious: Yes (Life-Threatening, Hospitalization)
  Sender: FDA-Public Use
  Company Number: CA-ABBOTT-12P-028-1012566-00

PATIENT
  Sex: Male

DRUGS (1)
  1. HUMIRA PEN [Suspect]
     Indication: COLITIS ULCERATIVE
     Route: 058
     Dates: start: 20120605

REACTIONS (1)
  - Suicide attempt [Unknown]
